FAERS Safety Report 9165246 (Version 1)
Quarter: 2013Q1

REPORT INFORMATION
  Report Type: Spontaneous
  Country: US (occurrence: None)
  Receive Date: 20130314
  Receipt Date: 20130314
  Transmission Date: 20140127
  Serious: Yes (Death, Hospitalization)
  Sender: FDA-Public Use
  Company Number: None

PATIENT
  Age: 66 Year
  Sex: Female

DRUGS (20)
  1. LETAIRIS [Suspect]
     Indication: PULMONARY ARTERIAL HYPERTENSION
     Route: 048
     Dates: start: 201101, end: 201302
  2. LETAIRIS [Concomitant]
  3. REVATIO [Concomitant]
  4. VENTAVIS [Concomitant]
  5. LASIX [Concomitant]
  6. KLOR-CON [Concomitant]
  7. BUSPAR [Concomitant]
  8. ESKALITH [Concomitant]
  9. EFFEXOR [Concomitant]
  10. NORCO [Concomitant]
  11. FOSAMAX [Concomitant]
  12. CYTOMEL [Concomitant]
  13. NEURONTIN [Concomitant]
  14. KLONOPIN [Concomitant]
  15. PAMELOR [Concomitant]
  16. TEQRETOL [Concomitant]
  17. ALENDRONATE [Concomitant]
  18. WELLLBUTRIN [Concomitant]
  19. LOMOTIL [Concomitant]
  20. ZOFRAN [Concomitant]

REACTIONS (8)
  - Dyspnoea [None]
  - Atrial fibrillation [None]
  - Sepsis [None]
  - Respiratory failure [None]
  - Respiratory distress [None]
  - Haemoptysis [None]
  - Escherichia test positive [None]
  - Pyrexia [None]
